FAERS Safety Report 10400311 (Version 1)
Quarter: 2014Q1

REPORT INFORMATION
  Report Type: Spontaneous
  Country: US (occurrence: None)
  Receive Date: 20130815
  Receipt Date: 20130815
  Transmission Date: 20141002
  Serious: Yes (Hospitalization, Other)
  Sender: FDA-Public Use
  Company Number: ADR-2013-00604

PATIENT
  Age: 16 Year
  Sex: Male

DRUGS (1)
  1. LIORESAL INTRATHECAL (BACLOFEN INJECTION)2000MCG/DAY [Suspect]
     Indication: MUSCLE SPASTICITY
     Dosage: 659 MCG/DAY

REACTIONS (6)
  - Blood creatine phosphokinase increased [None]
  - Drug withdrawal syndrome [None]
  - No therapeutic response [None]
  - Muscle spasticity [None]
  - Underdose [None]
  - Therapeutic response decreased [None]
